FAERS Safety Report 10423894 (Version 1)
Quarter: 2014Q3

REPORT INFORMATION
  Report Type: Spontaneous
  Country: US (occurrence: None)
  Receive Date: 20140722
  Receipt Date: 20140722
  Transmission Date: 20150326
  Serious: No
  Sender: FDA-Public Use
  Company Number: AEGR000493

PATIENT
  Age: 58 Year
  Sex: Male
  Weight: 88.4 kg

DRUGS (1)
  1. JUXTAPID [Suspect]
     Active Substance: LOMITAPIDE MESYLATE
     Indication: BLOOD CHOLESTEROL INCREASED

REACTIONS (2)
  - Myalgia [None]
  - Off label use [None]

NARRATIVE: CASE EVENT DATE: 20140501
